FAERS Safety Report 12866033 (Version 1)
Quarter: 2016Q4

REPORT INFORMATION
  Report Type: Spontaneous
  Country: JP (occurrence: JP)
  Receive Date: 20161020
  Receipt Date: 20161020
  Transmission Date: 20170207
  Serious: Yes (Other)
  Sender: FDA-Public Use
  Company Number: JP-TELIGENT, INC-IGIL20160284

PATIENT
  Age: 79 Year
  Sex: Female

DRUGS (2)
  1. DOPAMINE HYDROCHLORIDE. [Suspect]
     Active Substance: DOPAMINE HYDROCHLORIDE
     Indication: HYPOTENSION
     Route: 042
  2. ETILEFRINE [Concomitant]
     Active Substance: ETILEFRINE
     Indication: HYPOTENSION
     Route: 065

REACTIONS (6)
  - Ventricular hypokinesia [Recovering/Resolving]
  - Hyperkinesia [Recovering/Resolving]
  - Stress cardiomyopathy [Recovering/Resolving]
  - Electrocardiogram ST segment elevation [Recovering/Resolving]
  - Dyskinesia [Recovering/Resolving]
  - Ejection fraction abnormal [None]
